FAERS Safety Report 11099880 (Version 6)
Quarter: 2016Q2

REPORT INFORMATION
  Report Type: Report from Study
  Country: US (occurrence: US)
  Receive Date: 20150508
  Receipt Date: 20160621
  Transmission Date: 20160815
  Serious: Yes (Death, Other)
  Sender: FDA-Public Use
  Company Number: US-PFIZER INC-2015154431

PATIENT
  Age: 47 Year
  Sex: Female
  Weight: 118 kg

DRUGS (2)
  1. ACETAMINOPHEN\HYDROCODONE BITARTRATE [Concomitant]
     Active Substance: ACETAMINOPHEN\HYDROCODONE BITARTRATE
     Dosage: UNK
  2. GABAPENTIN. [Suspect]
     Active Substance: GABAPENTIN
     Dosage: UNK (STRENGTH: 600 MG)

REACTIONS (5)
  - Depressed level of consciousness [Unknown]
  - Intentional overdose [Fatal]
  - Respiratory depression [Unknown]
  - Pneumonia [Unknown]
  - Toxicity to various agents [Fatal]
